FAERS Safety Report 23364719 (Version 1)
Quarter: 2024Q1

REPORT INFORMATION
  Report Type: Spontaneous
  Country: US (occurrence: US)
  Receive Date: 20240104
  Receipt Date: 20240104
  Transmission Date: 20240410
  Serious: Yes (Hospitalization, Other)
  Sender: FDA-Public Use
  Company Number: US-AMGEN-USASP2023232178

PATIENT
  Sex: Male

DRUGS (4)
  1. CINACALCET HYDROCHLORIDE [Suspect]
     Active Substance: CINACALCET HYDROCHLORIDE
     Indication: Parathyroid tumour benign
     Dosage: 30 MILLIGRAM, BID
     Route: 048
  2. ZOLEDRONIC ACID [Concomitant]
     Active Substance: ZOLEDRONIC ACID
     Dosage: 4 MILLIGRAM
     Route: 042
  3. CALCITONIN [Concomitant]
     Active Substance: CALCITONIN
     Dosage: 4 INTERNATIONAL UNIT/KILOGRAM
     Route: 030
  4. FUROSEMIDE [Concomitant]
     Active Substance: FUROSEMIDE
     Dosage: 40 MILLIGRAM, QD
     Route: 042

REACTIONS (5)
  - Acute kidney injury [Recovering/Resolving]
  - Vocal cord paresis [Unknown]
  - Procedural pneumothorax [Unknown]
  - Infectious pleural effusion [Unknown]
  - Hypercalcaemia [Recovered/Resolved]
